FAERS Safety Report 5347481-7 (Version None)
Quarter: 2007Q2

REPORT INFORMATION
  Report Type: 
  Country: None (occurrence: None)
  Receive Date: 20070606
  Receipt Date: 20070529
  Transmission Date: 20071010
  Serious: Yes (Other)
  Sender: FDA-Public Use
  Company Number: PHEH2007US08035

PATIENT
  Sex: Female

DRUGS (1)
  1. ZELNORM [Suspect]
     Route: 048

REACTIONS (4)
  - ANGINA PECTORIS [None]
  - BACTERIAL CULTURE POSITIVE [None]
  - CHEST PAIN [None]
  - HERNIA [None]
